FAERS Safety Report 14773984 (Version 1)
Quarter: 2018Q2

REPORT INFORMATION
  Report Type: Spontaneous
  Country: NL (occurrence: NL)
  Receive Date: 20180418
  Receipt Date: 20180418
  Transmission Date: 20180711
  Serious: Yes (Other)
  Sender: FDA-Public Use
  Company Number: NL-BAUSCH-BL-2018-009976

PATIENT
  Sex: Female

DRUGS (2)
  1. DEXAMETHASONE. [Suspect]
     Active Substance: DEXAMETHASONE
     Indication: GENE MUTATION
     Dosage: 1.5 MG, QD (DAILY DOSE OF 1.5MG IN 3 DOSAGES)
     Route: 064
  2. DEXAMETHASONE. [Suspect]
     Active Substance: DEXAMETHASONE
     Indication: VIRILISM

REACTIONS (7)
  - Adrenogenital syndrome [Recovering/Resolving]
  - Cleft lip [Recovering/Resolving]
  - Memory impairment [Unknown]
  - Learning disability [Unknown]
  - Cleft palate [Recovering/Resolving]
  - Virilism [Recovering/Resolving]
  - Foetal exposure during pregnancy [Unknown]
